FAERS Safety Report 4703759-9 (Version None)
Quarter: 2005Q2

REPORT INFORMATION
  Report Type: 
  Country: None (occurrence: None)
  Receive Date: 20050629
  Receipt Date: 20050629
  Transmission Date: 20051028
  Serious: Yes (Hospitalization)
  Sender: FDA-Public Use
  Company Number: None

PATIENT
  Age: 60 Year
  Sex: Female
  Weight: 50.8029 kg

DRUGS (4)
  1. ZYVOX [Suspect]
     Indication: CELLULITIS
     Dosage: 600 MG PO BID
     Route: 048
  2. ZYVOX [Suspect]
     Indication: STAPHYLOCOCCAL INFECTION
     Dosage: 600 MG PO BID
     Route: 048
  3. ZYVOX [Suspect]
     Indication: ULCER
     Dosage: 600 MG PO BID
     Route: 048
  4. COUMADIN [Suspect]

REACTIONS (2)
  - DIARRHOEA [None]
  - INTERNATIONAL NORMALISED RATIO INCREASED [None]
